FAERS Safety Report 7447616-6 (Version None)
Quarter: 2011Q2

REPORT INFORMATION
  Report Type: 
  Country: None (occurrence: None)
  Receive Date: 20110429
  Receipt Date: 20110111
  Transmission Date: 20111010
  Serious: No
  Sender: FDA-Public Use
  Company Number: US-ASTRAZENECA-2011SE02526

PATIENT
  Sex: Male

DRUGS (5)
  1. HERPES MEDICATION [Concomitant]
  2. BLOOD PRESSURE MEDICATION [Concomitant]
  3. PRILOSEC OTC [Suspect]
     Route: 048
     Dates: start: 20101215, end: 20110102
  4. CHOLESTEROL-AND TRIGLYCERIDE REDUCERS [Concomitant]
  5. NEXIUM [Suspect]
     Route: 048

REACTIONS (2)
  - INCORRECT DRUG ADMINISTRATION DURATION [None]
  - BACK PAIN [None]
